FAERS Safety Report 9840559 (Version 1)
Quarter: 2014Q1

REPORT INFORMATION
  Report Type: Spontaneous
  Country: US (occurrence: US)
  Receive Date: 20140124
  Receipt Date: 20140124
  Transmission Date: 20141002
  Serious: No
  Sender: FDA-Public Use
  Company Number: US-PFIZER INC-2014022391

PATIENT
  Age: 50 Year
  Sex: Female
  Weight: 86.17 kg

DRUGS (2)
  1. LYRICA [Suspect]
     Indication: NEURALGIA
     Dosage: 75 MG, 3X/DAY
     Dates: start: 200603
  2. LYRICA [Suspect]
     Indication: NERVE INJURY

REACTIONS (2)
  - Formication [Unknown]
  - Migraine [Unknown]
